FAERS Safety Report 6119350-6 (Version None)
Quarter: 2009Q1

REPORT INFORMATION
  Report Type: 
  Country: None (occurrence: None)
  Receive Date: 20090311
  Receipt Date: 20090227
  Transmission Date: 20090719
  Serious: Yes (Hospitalization, Other)
  Sender: FDA-Public Use
  Company Number: GXKR2009AU02610

PATIENT
  Age: 55 Year
  Sex: Male

DRUGS (8)
  1. PREDNISONE TAB [Suspect]
     Indication: PYODERMA GANGRENOSUM
     Dosage: 50 MG; 12.5 MG; 100 MG; 15 MG; 35 MG; 15 MG DAY;  10 MG, DAY;  2 MG , DAY
  2. MYCOPHENOLATE MOFETIL [Suspect]
     Indication: PYODERMA GANGRENOSUM
     Dosage: 1 G, BID
  3. CYCLOSPORINE [Suspect]
     Indication: PYODERMA GANGRENOSUM
     Dosage: 150 MG, BID
  4. IMATINIB MESYLATE [Concomitant]
  5. MINOCYCLINE HCL [Concomitant]
  6. AZATHIOPRINE [Concomitant]
  7. DAPSONE [Concomitant]
  8. POTASSIUM IODIDE (POTASSIUM IODIDE) [Concomitant]

REACTIONS (10)
  - CUSHINGOID [None]
  - FALL [None]
  - HYPERLIPIDAEMIA [None]
  - HYPERTENSION [None]
  - MENINGITIS CRYPTOCOCCAL [None]
  - OSTEOPENIA [None]
  - RENAL IMPAIRMENT [None]
  - RIB FRACTURE [None]
  - SEPSIS [None]
  - TYPE 1 DIABETES MELLITUS [None]
